FAERS Safety Report 14861591 (Version 1)
Quarter: 2018Q2

REPORT INFORMATION
  Report Type: Spontaneous
  Country: US (occurrence: US)
  Receive Date: 20180508
  Receipt Date: 20180508
  Transmission Date: 20180711
  Serious: No
  Sender: FDA-Public Use
  Company Number: US-PERRIGO-18US002868

PATIENT
  Age: 52 Year
  Sex: Female

DRUGS (1)
  1. PERMETHRIN. [Suspect]
     Active Substance: PERMETHRIN
     Indication: BED BUG INFESTATION
     Dosage: UNKNOWN, SINGLE
     Route: 061
     Dates: start: 201603, end: 201603

REACTIONS (5)
  - Skin exfoliation [Recovered/Resolved]
  - Application site burn [Recovered/Resolved]
  - Off label use [Recovered/Resolved]
  - Skin disorder [Recovered/Resolved]
  - Application site pruritus [Recovered/Resolved]

NARRATIVE: CASE EVENT DATE: 201603
